FAERS Safety Report 23876515 (Version 2)
Quarter: 2024Q2

REPORT INFORMATION
  Report Type: Spontaneous
  Country: US (occurrence: US)
  Receive Date: 20240521
  Receipt Date: 20240530
  Transmission Date: 20240715
  Serious: No
  Sender: FDA-Public Use
  Company Number: US-LEO Pharma-370360

PATIENT
  Age: 54 Year
  Sex: Male

DRUGS (1)
  1. ADBRY [Suspect]
     Active Substance: TRALOKINUMAB-LDRM
     Indication: Eczema
     Dosage: 4 SYRINGES WERE INJECTED SUBCUTANEOUSLY AT THE PHYSICIANS OFFICE.
     Route: 058
     Dates: start: 202311, end: 20240527

REACTIONS (2)
  - Candida infection [Recovered/Resolved]
  - Tongue discomfort [Recovered/Resolved]
